FAERS Safety Report 5517877-9 (Version None)
Quarter: 2007Q4

REPORT INFORMATION
  Report Type: 
  Country: None (occurrence: None)
  Receive Date: 20071113
  Receipt Date: 20071107
  Transmission Date: 20080405
  Serious: Yes (Other)
  Sender: FDA-Public Use
  Company Number: 161839USA

PATIENT
  Sex: Female

DRUGS (7)
  1. COPAXONE [Suspect]
     Indication: MULTIPLE SCLEROSIS
     Dosage: (20 MG), SUBCUTANEOUS
     Route: 058
     Dates: start: 20070201, end: 20070401
  2. VERAPAMIL [Concomitant]
  3. ROPINIROLE HCL [Concomitant]
  4. AMITRIPTYLINE [Concomitant]
  5. BACLOFEN [Concomitant]
  6. RANITIDINE HCL [Concomitant]
  7. ACETYLSALICYLIC ACID SRT [Concomitant]

REACTIONS (1)
  - HEPATIC FAILURE [None]
